FAERS Safety Report 9984013 (Version 1)
Quarter: 2014Q1

REPORT INFORMATION
  Report Type: Report from Study
  Country: US (occurrence: US)
  Receive Date: 20140307
  Receipt Date: 20140307
  Transmission Date: 20141002
  Serious: No
  Sender: FDA-Public Use
  Company Number: US-ABBVIE-13P-163-1183168-00

PATIENT
  Age: 56 Year
  Sex: Female

DRUGS (8)
  1. HUMIRA [Suspect]
     Indication: PSORIATIC ARTHROPATHY
     Dates: start: 20131119
  2. NOVOLOG [Concomitant]
     Indication: DIABETES MELLITUS
     Dosage: FLEX PEN
  3. LANTUS [Concomitant]
     Indication: DIABETES MELLITUS
     Dosage: AT NIGHT
  4. GABAPENTIN [Concomitant]
     Indication: PAIN
  5. LEVOTHYROXIN [Concomitant]
     Indication: HYPOTHYROIDISM
  6. POTASSIUM CHLORIDE [Concomitant]
     Indication: PRODUCT USED FOR UNKNOWN INDICATION
  7. PRAVASTATIN SODIUM [Concomitant]
     Indication: BLOOD CHOLESTEROL INCREASED
  8. ASPIRIN [Concomitant]
     Indication: PRODUCT USED FOR UNKNOWN INDICATION

REACTIONS (1)
  - Pain [Not Recovered/Not Resolved]
